FAERS Safety Report 15222401 (Version 2)
Quarter: 2018Q3

REPORT INFORMATION
  Report Type: Spontaneous
  Country: CA (occurrence: CA)
  Receive Date: 20180731
  Receipt Date: 20180925
  Transmission Date: 20181010
  Serious: No
  Sender: FDA-Public Use
  Company Number: CA-CELLTRION INC.-2018CA019709

PATIENT

DRUGS (8)
  1. INFLECTRA [Suspect]
     Active Substance: INFLIXIMAB-DYYB
     Dosage: 328 MG, CYCLIC EVERY 0,2,6 AND EVERY 8 WEEKS;
     Route: 042
     Dates: start: 20180718
  2. INFLECTRA [Suspect]
     Active Substance: INFLIXIMAB-DYYB
     Indication: COLITIS ULCERATIVE
     Dosage: 328 MG, CYCLIC EVERY 0,2,6 AND EVERY 8 WEEKS;
     Route: 042
     Dates: start: 20180412
  3. INFLECTRA [Suspect]
     Active Substance: INFLIXIMAB-DYYB
     Dosage: 328 MG, CYCLIC EVERY 0,2,6 AND EVERY 8 WEEKS;
     Route: 042
     Dates: start: 20180522
  4. INFLECTRA [Suspect]
     Active Substance: INFLIXIMAB-DYYB
     Dosage: 328 MG, CYCLIC EVERY 0,2,6 AND EVERY 8 WEEKS;
     Route: 042
     Dates: start: 20180910
  5. BETAMETHASONE VALERATE W/MICONAZOLE/MUPIROCIN [Concomitant]
     Dosage: UNK
  6. PREDNISONE. [Concomitant]
     Active Substance: PREDNISONE
     Dosage: UNK
     Dates: start: 20180408
  7. ZOPLICONE [Concomitant]
     Active Substance: ZOPICLONE
     Dosage: UNK
     Dates: start: 20180418
  8. OXAZEPAM. [Concomitant]
     Active Substance: OXAZEPAM
     Dosage: UNK
     Dates: start: 20180418

REACTIONS (3)
  - Product use issue [Unknown]
  - Headache [Recovered/Resolved]
  - Condition aggravated [Recovered/Resolved]

NARRATIVE: CASE EVENT DATE: 20180412
